FAERS Safety Report 5312432-8 (Version None)
Quarter: 2007Q2

REPORT INFORMATION
  Report Type: 
  Country: None (occurrence: None)
  Receive Date: 20070430
  Receipt Date: 20070419
  Transmission Date: 20071010
  Serious: Yes (Other)
  Sender: FDA-Public Use
  Company Number: GR-MERCK-0704GRC00004

PATIENT
  Age: 54 Year
  Sex: Female

DRUGS (5)
  1. ZETIA [Suspect]
     Indication: HYPERCHOLESTEROLAEMIA
     Route: 048
     Dates: start: 20061201, end: 20070401
  2. ZETIA [Suspect]
     Route: 048
     Dates: start: 20070405, end: 20070405
  3. ATORVASTATIN CALCIUM [Concomitant]
     Indication: HYPERCHOLESTEROLAEMIA
     Route: 048
     Dates: start: 20060501, end: 20070310
  4. ATORVASTATIN CALCIUM [Concomitant]
     Route: 048
     Dates: start: 20070416
  5. OMEGA-3 ACID ETHYL ESTERS [Concomitant]
     Indication: HYPERTRIGLYCERIDAEMIA
     Route: 048
     Dates: start: 20060401

REACTIONS (2)
  - HYPERAESTHESIA [None]
  - HYPOAESTHESIA [None]
